FAERS Safety Report 9890803 (Version 2)
Quarter: 2014Q2

REPORT INFORMATION
  Report Type: Spontaneous
  Country: DE (occurrence: None)
  Receive Date: 20140210
  Receipt Date: 20140414
  Transmission Date: 20141212
  Serious: Yes (Other)
  Sender: FDA-Public Use
  Company Number: 1402-0271

PATIENT
  Sex: Male

DRUGS (7)
  1. EYLEA [Suspect]
     Indication: MACULAR OEDEMA
  2. ASS [Suspect]
  3. NEBIVOLOL (NEBIVOLOL) (NEBIVOLOL) [Concomitant]
  4. DIAMOX (ACETAZOLAMIDE) [Concomitant]
  5. DEXA-GENTAMICIN (DEXAMETHASONE SODIUM PHOSPHATE, GENTAMICIN SULFATE) [Concomitant]
  6. HYLO-VISION (HYALURONATE SODIUM) [Concomitant]
  7. EPROSARTAN (EPROSARTAN) [Concomitant]

REACTIONS (2)
  - Intraocular pressure increased [None]
  - Blindness [None]
